FAERS Safety Report 5010253-7 (Version None)
Quarter: 2006Q2

REPORT INFORMATION
  Report Type: 
  Country: None (occurrence: None)
  Receive Date: 20060404
  Receipt Date: 20060112
  Transmission Date: 20061013
  Serious: Yes (Other)
  Sender: FDA-Public Use
  Company Number: US200511003058

PATIENT
  Age: 53 Year
  Sex: Female
  Weight: 71.7 kg

DRUGS (13)
  1. CYMBALTA [Suspect]
     Indication: FIBROMYALGIA
     Dosage: 60 MG,
     Dates: start: 20051101
  2. BYETTA [Concomitant]
  3. TFORMIN HYDROCHLORIDE) [Concomitant]
  4. ATACAND/ SWE/(CANDESARTAN CILEXETIL) [Concomitant]
  5. PREMARIN [Concomitant]
  6. ZOCOR [Concomitant]
  7. TRICOR [Concomitant]
  8. SPIROLONE (SPIRONOLACTONE) [Concomitant]
  9. CALCIUM CARBONATE (CALCIUM CARBONATE) [Concomitant]
  10. VITAMINS-MINERALS THERAPEUTIC (VITAMINS-MINERALS THERAPEUTIC) [Concomitant]
  11. ASA (ASPIRIN (ACETYLSALICYLIC ACID) [Concomitant]
  12. FISH OIL (FISH OIL) [Concomitant]
  13. BILRON (IRON BILE SALTS) [Concomitant]

REACTIONS (3)
  - BLOOD GLUCOSE INCREASED [None]
  - GLYCOSYLATED HAEMOGLOBIN INCREASED [None]
  - HYPERTRIGLYCERIDAEMIA [None]
